FAERS Safety Report 7813213-3 (Version None)
Quarter: 2011Q4

REPORT INFORMATION
  Report Type: 
  Country: None (occurrence: None)
  Receive Date: 20111013
  Receipt Date: 20110930
  Transmission Date: 20120403
  Serious: Yes (Death)
  Sender: FDA-Public Use
  Company Number: US-BAYER-2011-063042

PATIENT
  Age: 18 Year
  Sex: Female
  Weight: 66.213 kg

DRUGS (14)
  1. AZITHROMYCIN [Concomitant]
     Indication: HERPES VIRUS INFECTION
     Dosage: 250 MG, UNK
     Route: 048
     Dates: start: 20090707
  2. NITROFURANTOIN [Concomitant]
     Indication: URINARY TRACT INFECTION
     Dosage: 100 MG, BID
     Route: 048
     Dates: start: 20090708
  3. ALBUTEROL [Concomitant]
     Indication: ASTHMA
     Dosage: UNK UNK, PRN
     Route: 055
     Dates: start: 19970101, end: 20090101
  4. FLUCONAZOLE [Concomitant]
     Dosage: 150 MG, UNK
     Route: 048
     Dates: start: 20090706
  5. HYDROCODONE BITARTRATE AND ACETAMINOPHEN [Concomitant]
     Indication: PAIN
     Dosage: UNK UNK, PRN
     Route: 048
     Dates: start: 20090707
  6. PHENAZOPYRIDINE HCL TAB [Concomitant]
     Indication: URINARY TRACT INFECTION
     Dosage: 200 MG, TID
     Route: 048
     Dates: start: 20090708
  7. SINGULAIR [Concomitant]
     Indication: ASTHMA
     Dosage: 10 MG, UNK
     Route: 048
     Dates: start: 19970101, end: 20090101
  8. FLOVENT [Concomitant]
     Indication: ASTHMA
     Dosage: UNK
     Route: 055
     Dates: start: 19970101, end: 20090101
  9. YAZ [Suspect]
     Indication: CONTRACEPTION
     Dosage: UNK
     Dates: start: 20090628
  10. CLARITIN [Concomitant]
     Dosage: 10 MG, QD
     Route: 048
  11. GARDASIL [Concomitant]
     Indication: HUMAN PAPILLOMA VIRUS IMMUNISATION
     Dosage: UNK
     Route: 030
     Dates: start: 20090616
  12. IBUPROFEN [Concomitant]
     Dosage: UNK
     Route: 048
     Dates: start: 20020101, end: 20090101
  13. ACYCLOVIR [Concomitant]
     Indication: HERPES VIRUS INFECTION
     Dosage: 400 MG, TID
     Route: 048
     Dates: start: 20090707
  14. LIDOCAINE [Concomitant]
     Indication: GENITAL HERPES
     Dosage: UNK UNK, QID
     Route: 061
     Dates: start: 20090707

REACTIONS (5)
  - PAIN [None]
  - PULMONARY INFARCTION [None]
  - PULMONARY EMBOLISM [None]
  - DYSPNOEA [None]
  - LOSS OF CONSCIOUSNESS [None]
